FAERS Safety Report 6839946-3 (Version None)
Quarter: 2010Q3

REPORT INFORMATION
  Report Type: 
  Country: None (occurrence: None)
  Receive Date: 20100714
  Receipt Date: 20100706
  Transmission Date: 20110219
  Serious: Yes (Hospitalization)
  Sender: FDA-Public Use
  Company Number: B0665195A

PATIENT
  Age: 62 Year
  Sex: Male
  Weight: 71 kg

DRUGS (4)
  1. ALLI [Suspect]
     Indication: OVERWEIGHT
     Dosage: 60MG PER DAY
     Route: 048
     Dates: start: 20100602, end: 20100604
  2. ENALAPRIL MALEATE [Concomitant]
     Indication: HYPERTENSION
  3. COLCHIMAX [Concomitant]
  4. MELOXICAM [Concomitant]

REACTIONS (2)
  - HYPERTENSION [None]
  - SYNCOPE [None]
